FAERS Safety Report 4916727-9 (Version None)
Quarter: 2006Q1

REPORT INFORMATION
  Report Type: 
  Country: None (occurrence: None)
  Receive Date: 20060214
  Receipt Date: 20060126
  Transmission Date: 20060701
  Serious: Yes (Death, Hospitalization, Other)
  Sender: FDA-Public Use
  Company Number: ES200512002433

PATIENT
  Age: 71 Year
  Sex: Male

DRUGS (3)
  1. XIGRIS [Suspect]
     Indication: SEPSIS
     Dosage: 24 UG/KG/HR, OTHER, INTRAVENOUS
     Route: 042
     Dates: start: 20051026, end: 20051027
  2. ANTIBIOTICS [Concomitant]
  3. OMEPRAZOLE [Concomitant]

REACTIONS (4)
  - HEPATIC ISCHAEMIA [None]
  - KAOLIN CEPHALIN CLOTTING TIME PROLONGED [None]
  - PERITONEAL HAEMORRHAGE [None]
  - SPLENIC RUPTURE [None]
